FAERS Safety Report 24147968 (Version 4)
Quarter: 2024Q4

REPORT INFORMATION
  Report Type: Report from Study
  Country: MX (occurrence: MX)
  Receive Date: 20240729
  Receipt Date: 20241016
  Transmission Date: 20250115
  Serious: Yes (Other)
  Sender: TAKEDA
  Company Number: MX-TAKEDA-2023TUS086439

PATIENT
  Age: 8 Year
  Sex: Male
  Weight: 15 kg

DRUGS (6)
  1. IDURSULFASE [Suspect]
     Active Substance: IDURSULFASE
     Indication: Mucopolysaccharidosis II
     Dosage: 15 MILLIGRAM, 1/WEEK
     Route: 042
  2. IDURSULFASE [Suspect]
     Active Substance: IDURSULFASE
     Dosage: 7.4 MILLILITER, 1/WEEK
     Route: 042
  3. IDURSULFASE [Suspect]
     Active Substance: IDURSULFASE
     Dosage: 14.75 MILLILITER, 1/WEEK
     Route: 042
  4. IDURSULFASE [Suspect]
     Active Substance: IDURSULFASE
     Dosage: 15.80 MILLIGRAM, 1/WEEK
     Route: 042
  5. IDURSULFASE [Suspect]
     Active Substance: IDURSULFASE
     Dosage: 7.8 MILLILITER, 1/WEEK
     Route: 042
     Dates: start: 20180928
  6. IDURSULFASE [Suspect]
     Active Substance: IDURSULFASE
     Dosage: 7.8 MILLIGRAM, 1/WEEK
     Route: 042

REACTIONS (14)
  - Deafness [Unknown]
  - Tonsillar disorder [Not Recovered/Not Resolved]
  - Epilepsy [Recovering/Resolving]
  - Respiratory disorder [Unknown]
  - Pyrexia [Recovered/Resolved]
  - Weight increased [Unknown]
  - Body height increased [Unknown]
  - Inappropriate schedule of product administration [Not Recovered/Not Resolved]
  - Productive cough [Not Recovered/Not Resolved]
  - Dengue fever [Not Recovered/Not Resolved]
  - Dermatitis atopic [Recovering/Resolving]
  - Tremor [Not Recovered/Not Resolved]
  - Dizziness [Not Recovered/Not Resolved]
  - Urticaria [Not Recovered/Not Resolved]

NARRATIVE: CASE EVENT DATE: 20230830
